FAERS Safety Report 10131075 (Version 2)
Quarter: 2015Q1

REPORT INFORMATION
  Report Type: Other
  Country: US (occurrence: US)
  Receive Date: 20140428
  Receipt Date: 20150216
  Transmission Date: 20150720
  Serious: Yes (Hospitalization, Other)
  Sender: FDA-Public Use
  Company Number: US-GSKPPD-2014GSK034579

PATIENT
  Age: 58 Year
  Sex: Female

DRUGS (7)
  1. AVANDIA [Suspect]
     Active Substance: ROSIGLITAZONE MALEATE
     Indication: DIABETES MELLITUS
     Dosage: DATES OF AVANDIA USE COULD NOT BE CONFIRMED IN RECORDS REVIEWED
     Route: 048
  2. COREG [Concomitant]
     Active Substance: CARVEDILOL
  3. DIOVAN [Concomitant]
     Active Substance: VALSARTAN
  4. LOTENSIN [Concomitant]
     Active Substance: BENAZEPRIL HYDROCHLORIDE
  5. DEMADEX [Concomitant]
     Active Substance: TORSEMIDE
  6. ASPIRIN. [Concomitant]
     Active Substance: ASPIRIN
  7. PLETAL [Concomitant]
     Active Substance: CILOSTAZOL

REACTIONS (1)
  - Brain stem infarction [Recovered/Resolved]

NARRATIVE: CASE EVENT DATE: 20020907
